FAERS Safety Report 9343904 (Version 1)
Quarter: 2013Q2

REPORT INFORMATION
  Report Type: Spontaneous
  Country: US (occurrence: US)
  Receive Date: 20130612
  Receipt Date: 20130612
  Transmission Date: 20140414
  Serious: Yes (Hospitalization)
  Sender: FDA-Public Use
  Company Number: US-BAYER-2013-070870

PATIENT
  Age: 31 Year
  Sex: Female
  Weight: 123 kg

DRUGS (6)
  1. YAZ [Suspect]
     Indication: CONTRACEPTION
  2. GIANVI [Suspect]
  3. OXYCODONE [Concomitant]
     Dosage: 5MG-325MG
  4. ACETAMINOPHEN [Concomitant]
     Dosage: 5MG-325MG
  5. CLINDAMYCIN [Concomitant]
     Dosage: 300 MG, UNK
  6. PREVACID [Concomitant]
     Dosage: 15-30 MG AS NEEDED
     Dates: start: 20120510, end: 20120628

REACTIONS (1)
  - Pulmonary embolism [None]
